FAERS Safety Report 15836112 (Version 2)
Quarter: 2019Q1

REPORT INFORMATION
  Report Type: Spontaneous
  Country: US (occurrence: US)
  Receive Date: 20190117
  Receipt Date: 20190119
  Transmission Date: 20190417
  Serious: Yes (Hospitalization, Other)
  Sender: FDA-Public Use
  Company Number: US-AUROBINDO-AUR-APL-2019-000365

PATIENT
  Age: 76 Year
  Sex: Female

DRUGS (2)
  1. LIDOCAINE. [Suspect]
     Active Substance: LIDOCAINE
     Dosage: 2 ADDITIONAL DOSES OF 20 TO 30 ML 2% TOPICAL LIDOCAINE
     Route: 061
  2. LIDOCAINE. [Suspect]
     Active Substance: LIDOCAINE
     Indication: PRODUCT USED FOR UNKNOWN INDICATION
     Dosage: 3 DOSES OF 25 TO 30 ML 4% TPICAL LIDOCAINE
     Route: 061

REACTIONS (14)
  - Bradycardia [Unknown]
  - Confusional state [Unknown]
  - Respiratory failure [Unknown]
  - Toxicity to various agents [Unknown]
  - Hypoxia [Unknown]
  - Unresponsive to stimuli [Unknown]
  - Seizure [Unknown]
  - Aggression [Unknown]
  - Mydriasis [Recovered/Resolved]
  - Respiration abnormal [Unknown]
  - Hypotension [Unknown]
  - Renal tubular necrosis [Recovered/Resolved]
  - Pulse absent [Unknown]
  - Dysarthria [Unknown]
